FAERS Safety Report 18298725 (Version 1)
Quarter: 2020Q3

REPORT INFORMATION
  Report Type: Spontaneous
  Country: US (occurrence: US)
  Receive Date: 20200923
  Receipt Date: 20200923
  Transmission Date: 20201104
  Serious: Yes (Other)
  Sender: FDA-Public Use
  Company Number: US-LUPIN PHARMACEUTICALS INC.-2020-06061

PATIENT
  Age: 33 Year
  Sex: Female

DRUGS (3)
  1. SERTRALINE [Suspect]
     Active Substance: SERTRALINE HYDROCHLORIDE
     Indication: PRENATAL CARE
     Dosage: UNK
     Route: 065
  2. PHENCYCLIDINE [Suspect]
     Active Substance: PHENCYCLIDINE
     Indication: PRODUCT USED FOR UNKNOWN INDICATION
     Dosage: UNK (ABUSE FOR 14?YEARS)
     Route: 065
  3. FERROUS SULFATE. [Suspect]
     Active Substance: FERROUS SULFATE
     Indication: PRENATAL CARE
     Dosage: UNK
     Route: 065

REACTIONS (2)
  - Exposure during pregnancy [Unknown]
  - Premature separation of placenta [Unknown]
